FAERS Safety Report 15841427 (Version 1)
Quarter: 2019Q1

REPORT INFORMATION
  Report Type: Spontaneous
  Country: PT (occurrence: PT)
  Receive Date: 20190118
  Receipt Date: 20190118
  Transmission Date: 20190417
  Serious: Yes (Hospitalization)
  Sender: FDA-Public Use
  Company Number: PT-SAKK-2019SA007736AA

PATIENT
  Age: 79 Year
  Sex: Female

DRUGS (2)
  1. ENOXAPARIN SODIUM. [Suspect]
     Active Substance: ENOXAPARIN SODIUM
     Indication: HYPOCOAGULABLE STATE
     Dosage: 60 MG, UNK
  2. ENOXAPARIN SODIUM. [Suspect]
     Active Substance: ENOXAPARIN SODIUM
     Dosage: 40 MG, UNK

REACTIONS (8)
  - Pyrexia [Unknown]
  - Vesical fistula [Unknown]
  - Urinary retention [Unknown]
  - Abdominal mass [Unknown]
  - Haematuria [Unknown]
  - Anaemia [Unknown]
  - Haematoma [Unknown]
  - Abscess [Unknown]
